FAERS Safety Report 4828101-4 (Version None)
Quarter: 2005Q4

REPORT INFORMATION
  Report Type: 
  Country: None (occurrence: None)
  Receive Date: 20051110
  Receipt Date: 20051028
  Transmission Date: 20060501
  Serious: Yes (Hospitalization, Other)
  Sender: FDA-Public Use
  Company Number: 2005149936

PATIENT
  Sex: Female

DRUGS (4)
  1. BEXTRA [Suspect]
     Indication: ILL-DEFINED DISORDER
     Dosage: 80 MG (40 MG, 2 IN 1 D), ORAL
     Route: 048
     Dates: start: 20040901, end: 20040901
  2. ANALGESICS (ANALGESICS) [Concomitant]
  3. ALL OTHER THERAPEUTIC PRODUCTS (ALL OTHER THERAPEUTIC PRODUCTS) [Concomitant]
  4. DIURETICS (DIURETICS) [Concomitant]

REACTIONS (5)
  - ABASIA [None]
  - DRUG HYPERSENSITIVITY [None]
  - DRUG INTERACTION [None]
  - IDIOSYNCRATIC DRUG REACTION [None]
  - SPINAL DISORDER [None]
